FAERS Safety Report 18829102 (Version 1)
Quarter: 2021Q1

REPORT INFORMATION
  Report Type: Spontaneous
  Country: US (occurrence: US)
  Receive Date: 20210201
  Receipt Date: 20210201
  Transmission Date: 20210419
  Serious: No
  Sender: FDA-Public Use
  Company Number: US-ABBVIE-20K-163-3564848-00

PATIENT
  Sex: Female

DRUGS (1)
  1. HUMIRA [Suspect]
     Active Substance: ADALIMUMAB
     Indication: CROHN^S DISEASE
     Route: 058
     Dates: start: 202005

REACTIONS (8)
  - Injection site warmth [Recovered/Resolved]
  - Device issue [Recovered/Resolved]
  - Weight decreased [Recovered/Resolved]
  - Injection site erythema [Recovered/Resolved]
  - Wrong technique in product usage process [Recovered/Resolved]
  - Incorrect dose administered [Recovered/Resolved]
  - Injection site pruritus [Recovered/Resolved]
  - Injection site indentation [Recovered/Resolved]

NARRATIVE: CASE EVENT DATE: 2020
